FAERS Safety Report 6471659-2 (Version None)
Quarter: 2009Q4

REPORT INFORMATION
  Report Type: 
  Country: None (occurrence: None)
  Receive Date: 20091203
  Receipt Date: 20090316
  Transmission Date: 20100525
  Serious: Yes (Hospitalization)
  Sender: FDA-Public Use
  Company Number: US-ELI_LILLY_AND_COMPANY-US200803003463

PATIENT
  Sex: Female
  Weight: 111.11 kg

DRUGS (2)
  1. ZYPREXA [Suspect]
     Dosage: 15 MG, UNK
  2. ZYPREXA [Suspect]
     Dosage: 20 MG, UNK

REACTIONS (2)
  - CAROTID ARTERY STENT INSERTION [None]
  - DIABETES MELLITUS [None]
